FAERS Safety Report 12783386 (Version 1)
Quarter: 2016Q3

REPORT INFORMATION
  Report Type: Spontaneous
  Country: US (occurrence: US)
  Receive Date: 20160927
  Receipt Date: 20160927
  Transmission Date: 20161109
  Serious: No
  Sender: FDA-Public Use
  Company Number: US-ACTELION-A-US2014-105829

PATIENT
  Age: 57 Year
  Sex: Male

DRUGS (12)
  1. METFORMIN [Concomitant]
     Active Substance: METFORMIN HYDROCHLORIDE
     Dosage: UNK
     Dates: start: 20140619
  2. VITAMIN D [Concomitant]
     Active Substance: CHOLECALCIFEROL
     Dosage: UNK
     Dates: start: 20140619
  3. TARGRETIN [Concomitant]
     Active Substance: BEXAROTENE
     Dosage: UNK
     Dates: start: 20140619
  4. INTRON A [Concomitant]
     Active Substance: INTERFERON ALFA-2B
     Dosage: UNK
     Dates: start: 20140619
  5. AMARYL [Concomitant]
     Active Substance: GLIMEPIRIDE
     Dosage: UNK
     Dates: start: 20140619
  6. CRESTOR [Concomitant]
     Active Substance: ROSUVASTATIN CALCIUM
     Dosage: UNK
     Dates: start: 20140619
  7. VITAMIN C [Concomitant]
     Active Substance: ASCORBIC ACID
     Dosage: UNK
     Dates: start: 20140619
  8. TRIAMCINOLONE [Concomitant]
     Active Substance: TRIAMCINOLONE
  9. JANUVIA [Concomitant]
     Active Substance: SITAGLIPTIN PHOSPHATE
     Dosage: UNK
     Dates: start: 20140619
  10. VALCHLOR [Suspect]
     Active Substance: MECHLORETHAMINE
     Indication: MYCOSIS FUNGOIDES
     Dosage: 0.016 %, QD
     Route: 061
     Dates: start: 20140624
  11. CLARITIN [Concomitant]
     Active Substance: LORATADINE
     Dosage: UNK
     Dates: start: 20140829
  12. SYNTHROID [Concomitant]
     Active Substance: LEVOTHYROXINE SODIUM
     Dosage: UNK
     Dates: start: 20140619

REACTIONS (7)
  - Skin exfoliation [Unknown]
  - Pruritus [Not Recovered/Not Resolved]
  - Blister [Unknown]
  - Application site inflammation [Unknown]
  - Skin atrophy [Unknown]
  - Dry skin [Unknown]
  - Skin fissures [Unknown]
